FAERS Safety Report 5477297-2 (Version None)
Quarter: 2007Q4

REPORT INFORMATION
  Report Type: 
  Country: None (occurrence: None)
  Receive Date: 20071004
  Receipt Date: 20070927
  Transmission Date: 20080405
  Serious: Yes (Hospitalization)
  Sender: FDA-Public Use
  Company Number: US-SHR-US-2007-036595

PATIENT
  Age: 77 Year

DRUGS (1)
  1. BETAPACE [Suspect]
     Dosage: 80 MG, 2X/DAY

REACTIONS (1)
  - HOSPITALISATION [None]
